FAERS Safety Report 10598760 (Version 1)
Quarter: 2014Q4

REPORT INFORMATION
  Report Type: Spontaneous
  Country: US (occurrence: US)
  Receive Date: 20141121
  Receipt Date: 20141121
  Transmission Date: 20150529
  Serious: No
  Sender: FDA-Public Use
  Company Number: US-PFIZER INC-2014318244

PATIENT
  Age: 60 Year
  Sex: Female

DRUGS (1)
  1. PROCARDIA [Suspect]
     Active Substance: NIFEDIPINE
     Dosage: UNK UNK, DAILY

REACTIONS (3)
  - Headache [Unknown]
  - Rash [Unknown]
  - Therapeutic response unexpected [Unknown]
